FAERS Safety Report 6306590-6 (Version None)
Quarter: 2009Q3

REPORT INFORMATION
  Report Type: 
  Country: None (occurrence: None)
  Receive Date: 20090812
  Receipt Date: 20090805
  Transmission Date: 20100115
  Serious: Yes (Other)
  Sender: FDA-Public Use
  Company Number: A0800739A

PATIENT
  Age: 63 Year
  Sex: Female

DRUGS (2)
  1. LAMICTAL [Suspect]
     Indication: BIPOLAR DISORDER
     Dosage: 100MG PER DAY
     Route: 048
     Dates: start: 20090624, end: 20090708
  2. CYMBALTA [Concomitant]
     Route: 048

REACTIONS (3)
  - DEPRESSION [None]
  - NERVOUSNESS [None]
  - SUICIDAL IDEATION [None]
